FAERS Safety Report 6298429-2 (Version None)
Quarter: 2009Q3

REPORT INFORMATION
  Report Type: 
  Country: None (occurrence: None)
  Receive Date: 20090805
  Receipt Date: 20090727
  Transmission Date: 20100115
  Serious: Yes (Hospitalization)
  Sender: FDA-Public Use
  Company Number: FR-ELI_LILLY_AND_COMPANY-FR200907005804

PATIENT
  Sex: Female

DRUGS (2)
  1. PROZAC [Suspect]
     Dosage: 20 MG, DAILY (1/D)
     Route: 048
     Dates: start: 20080201
  2. PROZAC [Suspect]
     Dosage: 20 MG, 2/D
     Route: 048
     Dates: end: 20090101

REACTIONS (2)
  - COUGH [None]
  - PERTUSSIS [None]
